FAERS Safety Report 6553084-9 (Version None)
Quarter: 2010Q1

REPORT INFORMATION
  Report Type: 
  Country: None (occurrence: None)
  Receive Date: 20100127
  Receipt Date: 20090223
  Transmission Date: 20100710
  Serious: No
  Sender: FDA-Public Use
  Company Number: A0759634A

PATIENT
  Age: 38 Year
  Sex: Female
  Weight: 72.7 kg

DRUGS (5)
  1. IMITREX [Suspect]
     Indication: MIGRAINE
     Dosage: 6MG AS REQUIRED
     Route: 058
     Dates: start: 20080922
  2. VICODIN [Concomitant]
     Indication: MIGRAINE
     Route: 048
     Dates: start: 20060101
  3. CYMBALTA [Concomitant]
     Dosage: 120MG PER DAY
     Dates: start: 20060101
  4. SEROQUEL [Concomitant]
     Dosage: 450MG IN THE MORNING
     Dates: start: 20060101
  5. TEGRETOL [Concomitant]
     Dosage: 400MG IN THE MORNING
     Dates: start: 20060101

REACTIONS (2)
  - DRUG INEFFECTIVE [None]
  - PRODUCT QUALITY ISSUE [None]
